FAERS Safety Report 14800850 (Version 1)
Quarter: 2018Q2

REPORT INFORMATION
  Report Type: Spontaneous
  Country: US (occurrence: US)
  Receive Date: 20180424
  Receipt Date: 20180424
  Transmission Date: 20180711
  Serious: No
  Sender: FDA-Public Use
  Company Number: US-CELGENEUS-USA-20180406983

PATIENT
  Sex: Female

DRUGS (3)
  1. REVLIMID [Suspect]
     Active Substance: LENALIDOMIDE
     Indication: PLASMA CELL MYELOMA
     Route: 048
  2. REVLIMID [Suspect]
     Active Substance: LENALIDOMIDE
     Indication: BASAL CELL CARCINOMA
  3. REVLIMID [Suspect]
     Active Substance: LENALIDOMIDE
     Indication: SQUAMOUS CELL CARCINOMA

REACTIONS (1)
  - Drug intolerance [Not Recovered/Not Resolved]
